FAERS Safety Report 5190040-X (Version None)
Quarter: 2006Q4

REPORT INFORMATION
  Report Type: 
  Country: None (occurrence: None)
  Receive Date: 20061215
  Receipt Date: 20061228
  Transmission Date: 20070319
  Serious: Yes (Hospitalization)
  Sender: FDA-Public Use
  Company Number: 233627

PATIENT

DRUGS (2)
  1. GRTPA (ALTEPLASE) PWDR + SOLVENT, INFUSION SOLN [Suspect]
     Indication: ISCHAEMIC STROKE
     Dates: start: 20061101
  2. RADICUT (EDARAVONE) [Suspect]
     Indication: CEREBRAL INFARCTION
     Dosage: 60 MG
     Dates: start: 20061101

REACTIONS (3)
  - ASPARTATE AMINOTRANSFERASE INCREASED [None]
  - BLOOD BILIRUBIN INCREASED [None]
  - HEPATIC FUNCTION ABNORMAL [None]
